FAERS Safety Report 4352380-3 (Version None)
Quarter: 2004Q2

REPORT INFORMATION
  Report Type: 
  Country: None (occurrence: None)
  Receive Date: 20040428
  Receipt Date: 20040415
  Transmission Date: 20050107
  Serious: Yes (Death, Life-Threatening, Hospitalization, Other)
  Sender: FDA-Public Use
  Company Number: 2004026045

PATIENT
  Age: 30 Year
  Sex: Female

DRUGS (2)
  1. VFEND [Suspect]
     Indication: FEBRILE NEUTROPENIA
  2. VFEND [Suspect]
     Indication: PROPHYLAXIS

REACTIONS (4)
  - BRONCHOPNEUMONIA [None]
  - HEPATIC CANDIDIASIS [None]
  - SEPTIC SHOCK [None]
  - SYSTEMIC CANDIDA [None]
